FAERS Safety Report 5309709-9 (Version None)
Quarter: 2007Q2

REPORT INFORMATION
  Report Type: 
  Country: None (occurrence: None)
  Receive Date: 20070427
  Receipt Date: 20060615
  Transmission Date: 20071010
  Serious: Yes (Hospitalization)
  Sender: FDA-Public Use
  Company Number: US-GLAXOSMITHKLINE-A0606534A

PATIENT
  Age: 31 Year
  Sex: Female
  Weight: 60 kg

DRUGS (2)
  1. ZOFRAN [Suspect]
     Dosage: 4MG UNKNOWN
     Route: 042
  2. ANESTHESIA [Concomitant]

REACTIONS (1)
  - EXTRAPYRAMIDAL DISORDER [None]
